FAERS Safety Report 14610853 (Version 1)
Quarter: 2018Q1

REPORT INFORMATION
  Report Type: Spontaneous
  Country: FR (occurrence: FR)
  Receive Date: 20180308
  Receipt Date: 20180308
  Transmission Date: 20180509
  Serious: Yes (Hospitalization)
  Sender: FDA-Public Use
  Company Number: FR-SUN PHARMACEUTICAL INDUSTRIES LTD-2018RR-165390

PATIENT
  Age: 68 Year
  Sex: Male
  Weight: 98.5 kg

DRUGS (18)
  1. ARESTAL 1 MG, COMPRIME [Concomitant]
     Active Substance: LOPERAMIDE OXIDE
     Indication: DIARRHOEA
     Dosage: 3 DF, UNK
     Route: 048
  2. BACTRIM [Concomitant]
     Active Substance: SULFAMETHOXAZOLE\TRIMETHOPRIM
     Indication: INFECTION PROPHYLAXIS
     Dosage: 1 CP UN JOUR SUR 2 ()
     Route: 048
  3. SOTALOL. [Suspect]
     Active Substance: SOTALOL
     Indication: ATRIAL FIBRILLATION
     Dosage: INCONNUE ()
     Route: 048
     Dates: start: 20170310
  4. IMNOVID 2 MG, GELULES [Suspect]
     Active Substance: POMALIDOMIDE
     Indication: PRODUCT USED FOR UNKNOWN INDICATION
     Dosage: 1 DF, UNK
     Route: 048
     Dates: start: 20171023, end: 20171201
  5. XATRAL LP 10 MG, COMPRIME A LIBERATION PROLONGEE [Concomitant]
     Active Substance: ALFUZOSIN
     Indication: PRODUCT USED FOR UNKNOWN INDICATION
     Dosage: 1 DF, UNK
     Route: 048
  6. COUMADINE [Concomitant]
     Active Substance: WARFARIN SODIUM
     Dosage: UNK
     Route: 065
  7. DIFFU K, GELULE [Concomitant]
     Active Substance: POTASSIUM CHLORIDE
     Indication: HYPOKALAEMIA
     Dosage: 3 DF, UNK
     Route: 048
  8. VELCADE [Suspect]
     Active Substance: BORTEZOMIB
     Indication: PLASMA CELL MYELOMA
     Dosage: J1 J4 J8 J11
     Route: 042
     Dates: start: 20150710, end: 20160120
  9. VELCADE [Suspect]
     Active Substance: BORTEZOMIB
     Dosage: CYCLE DE 21J
     Route: 042
     Dates: start: 20171023, end: 20171201
  10. BURINEX 1 MG, COMPRIME [Concomitant]
     Indication: OEDEMA
     Dosage: 3 DF, UNK
     Route: 048
     Dates: start: 201710
  11. COUMADINE [Concomitant]
     Active Substance: WARFARIN SODIUM
     Indication: ATRIAL FIBRILLATION
     Dosage: INCONNUE ()
     Route: 048
     Dates: end: 20171127
  12. CALCIDOSE 500, POUDRE POUR SUSPENSION BUVABLE EN SACHET [Concomitant]
     Indication: PRODUCT USED FOR UNKNOWN INDICATION
     Dosage: 1 DF, UNK
     Route: 048
  13. TIORFAN [Concomitant]
     Active Substance: RACECADOTRIL
     Indication: DIARRHOEA
     Dosage: 3 DF, UNK
     Route: 048
  14. PANTOPRAZOLE [Concomitant]
     Active Substance: PANTOPRAZOLE
     Indication: PRODUCT USED FOR UNKNOWN INDICATION
     Dosage: 80 MG, UNK
     Route: 048
  15. ZELITREX 500 MG, COMPRIME ENROBE [Concomitant]
     Indication: INFECTION PROPHYLAXIS
     Dosage: 2 DF, UNK
     Route: 048
  16. DEXAMETHASONE. [Concomitant]
     Active Substance: DEXAMETHASONE
     Indication: PLASMA CELL MYELOMA
     Dosage: TOUT LES LUNDIS MATIN
     Route: 048
     Dates: start: 20150710, end: 20171201
  17. SPIRIVA 18 MICROGRAMMES, POUDRE POUR INHALATION EN GELULE [Concomitant]
     Indication: LUNG DISORDER
     Dosage: 1 GBQ, UNK
     Route: 055
     Dates: end: 20180110
  18. ULTIBRO BREEZHALER [Concomitant]
     Active Substance: GLYCOPYRRONIUM\INDACATEROL
     Indication: LUNG DISORDER
     Dosage: INCONNUE ()
     Route: 055
     Dates: start: 20180110

REACTIONS (2)
  - Dyspnoea [Not Recovered/Not Resolved]
  - Bronchitis chronic [Not Recovered/Not Resolved]

NARRATIVE: CASE EVENT DATE: 20171102
